FAERS Safety Report 6724701-5 (Version None)
Quarter: 2010Q2

REPORT INFORMATION
  Report Type: 
  Country: None (occurrence: None)
  Receive Date: 20100511
  Receipt Date: 20100428
  Transmission Date: 20101027
  Serious: Yes (Hospitalization)
  Sender: FDA-Public Use
  Company Number: 2010-1418

PATIENT
  Age: 55 Year
  Sex: Female
  Weight: 136 kg

DRUGS (10)
  1. APOKYN [Suspect]
     Indication: PARKINSON'S DISEASE
     Dosage: SUBCUTANEOUS
     Route: 058
     Dates: start: 20090101
  2. CARBIDOPA-LEVODOPA [Concomitant]
  3. COMTAN [Concomitant]
  4. BACLOFEN [Concomitant]
  5. VENLAXAFINE (VENLAFAXINE) [Concomitant]
  6. SELEGINE (SELEGILINE HYDROCHLORIDE) [Concomitant]
  7. ACCUPRIL [Concomitant]
  8. BROMOCRIPTINE [Concomitant]
  9. ASPIRIN [Concomitant]
  10. DARVOCET [Concomitant]

REACTIONS (1)
  - MYOCARDIAL INFARCTION [None]
